FAERS Safety Report 9442079 (Version 1)
Quarter: 2013Q3

REPORT INFORMATION
  Report Type: Spontaneous
  Country: DE (occurrence: DE)
  Receive Date: 20130806
  Receipt Date: 20130806
  Transmission Date: 20140515
  Serious: Yes (Hospitalization)
  Sender: FDA-Public Use
  Company Number: DE-AMGEN-DEUSP2013054681

PATIENT
  Age: 69 Year
  Sex: Female
  Weight: 61 kg

DRUGS (5)
  1. NEULASTA [Suspect]
     Indication: PRODUCT USED FOR UNKNOWN INDICATION
     Dosage: 6 MG, UNK
     Route: 065
     Dates: start: 20130622, end: 20130622
  2. EPIRUBICIN [Concomitant]
     Indication: BREAST CANCER
     Dosage: 200 MG, Q2WK (120 MG/M2)
     Route: 042
     Dates: start: 20130506, end: 20130607
  3. PACLITAXEL ALBUMIN [Concomitant]
     Indication: BREAST CANCER
     Dosage: 560 MG, Q2WK (330 MG/M2)
     Route: 042
     Dates: start: 20130621
  4. SPIRIVA [Concomitant]
     Dosage: 1 TIMES
  5. FOSTER                             /00500401/ [Concomitant]
     Dosage: 2 TIMES

REACTIONS (1)
  - Pyrexia [Recovered/Resolved]
